FAERS Safety Report 12728048 (Version 2)
Quarter: 2016Q4

REPORT INFORMATION
  Report Type: Spontaneous
  Country: US (occurrence: US)
  Receive Date: 20160909
  Receipt Date: 20161024
  Transmission Date: 20170207
  Serious: Yes (Death, Hospitalization, Other)
  Sender: FDA-Public Use
  Company Number: US-PFIZER INC-2016413834

PATIENT
  Age: 66 Year
  Sex: Female
  Weight: 71.21 kg

DRUGS (7)
  1. CRESTOR [Concomitant]
     Active Substance: ROSUVASTATIN CALCIUM
     Dosage: 10 MG, 1X/DAY
     Route: 048
  2. ASPIRIN. [Concomitant]
     Active Substance: ASPIRIN
     Dosage: TAKING LOW DOSE OF ASPIRIN
  3. VITAMIN D [Concomitant]
     Active Substance: CHOLECALCIFEROL
     Indication: VITAMIN SUPPLEMENTATION
     Dosage: 2000 UNITS, CAPSULE, ORALLY, DAILY
     Route: 048
  4. FISH OIL [Concomitant]
     Active Substance: FISH OIL
     Indication: NUTRITIONAL SUPPLEMENTATION
     Dosage: 1200 MG, CAPSULE, ORALLY, TWO DAILY
     Route: 048
  5. IBRANCE [Suspect]
     Active Substance: PALBOCICLIB
     Indication: BREAST CANCER
     Dosage: 125 MG, CYCLIC (125 MG DAILY FOR 21 DAYS AND 7 DAYS OFF)
     Route: 048
     Dates: start: 20160712, end: 20160728
  6. LETROZOLE. [Concomitant]
     Active Substance: LETROZOLE
  7. IBANDRONATE SODIUM. [Concomitant]
     Active Substance: IBANDRONATE SODIUM
     Dosage: 150 MG, TABLET, ORALLY, ONE A MONTH
     Route: 048

REACTIONS (14)
  - Neutropenia [Fatal]
  - White blood cell count decreased [Unknown]
  - Protein total abnormal [Unknown]
  - Pancytopenia [Unknown]
  - Blood calcium abnormal [Unknown]
  - Blood urea nitrogen/creatinine ratio increased [Unknown]
  - Carbon dioxide abnormal [Unknown]
  - Thrombocytopenia [Unknown]
  - Blood glucose abnormal [Unknown]
  - Globulins decreased [Unknown]
  - Platelet count decreased [Unknown]
  - Red blood cell count decreased [Unknown]
  - Blood alkaline phosphatase increased [Unknown]
  - Aspartate aminotransferase abnormal [Unknown]

NARRATIVE: CASE EVENT DATE: 20160728
